FAERS Safety Report 23277110 (Version 1)
Quarter: 2023Q4

REPORT INFORMATION
  Report Type: Spontaneous
  Country: US (occurrence: US)
  Receive Date: 20231208
  Receipt Date: 20231208
  Transmission Date: 20240110
  Serious: No
  Sender: FDA-Public Use
  Company Number: US-AMERICAN REGENT INC-2023002147

PATIENT
  Age: 23 Year
  Sex: Female

DRUGS (3)
  1. VENOFER [Suspect]
     Active Substance: IRON SUCROSE
     Indication: Iron deficiency anaemia
     Dosage: UNK,UNK
     Route: 065
     Dates: start: 20220502, end: 20220502
  2. VENOFER [Suspect]
     Active Substance: IRON SUCROSE
     Dosage: UNK,UNK
     Route: 065
     Dates: start: 20220504, end: 20220504
  3. VENOFER [Suspect]
     Active Substance: IRON SUCROSE
     Dosage: UNK,UNK
     Route: 065
     Dates: start: 20220506, end: 20220506

REACTIONS (2)
  - Ill-defined disorder [Unknown]
  - Inappropriate schedule of product administration [Unknown]

NARRATIVE: CASE EVENT DATE: 20220502
